FAERS Safety Report 13998286 (Version 6)
Quarter: 2018Q1

REPORT INFORMATION
  Report Type: Report from Study
  Country: None (occurrence: FR)
  Receive Date: 20170921
  Receipt Date: 20180219
  Transmission Date: 20180508
  Serious: Yes (Life-Threatening, Hospitalization, Other)
  Sender: FDA-Public Use
  Company Number: FR-ABBVIE-17P-056-2092459-00

PATIENT
  Age: 73 Year
  Sex: Male
  Weight: 72 kg

DRUGS (27)
  1. AZACITIDINE. [Suspect]
     Active Substance: AZACITIDINE
     Indication: ACUTE MYELOID LEUKAEMIA
     Dosage: DAY 1 THROUGH DAY 7
     Route: 058
     Dates: start: 20170406, end: 20170824
  2. OFLOCET [Concomitant]
     Active Substance: OFLOXACIN
     Indication: PYREXIA
     Route: 048
     Dates: start: 20170529
  3. OXYCONTIN [Concomitant]
     Active Substance: OXYCODONE HYDROCHLORIDE
     Route: 048
     Dates: start: 20170508
  4. PARACETAMOL [Concomitant]
     Active Substance: ACETAMINOPHEN
     Indication: MUCOSAL INFLAMMATION
     Route: 048
     Dates: start: 20170508
  5. DIPROSONE [Concomitant]
     Active Substance: BETAMETHASONE DIPROPIONATE
     Indication: DERMATITIS ALLERGIC
     Route: 062
     Dates: start: 20170411
  6. SODIUM BICARBONATE. [Concomitant]
     Active Substance: SODIUM BICARBONATE
     Indication: MUCOSAL INFLAMMATION
     Route: 048
     Dates: start: 20170503, end: 20170504
  7. OXYNORMORO [Concomitant]
     Active Substance: OXYCODONE HYDROCHLORIDE
     Indication: MUCOSAL INFLAMMATION
     Route: 048
     Dates: start: 20170503
  8. ONDANSETRON [Concomitant]
     Active Substance: ONDANSETRON
     Indication: NAUSEA
     Route: 048
     Dates: start: 20170703
  9. SODIUM BICARBONATE. [Concomitant]
     Active Substance: SODIUM BICARBONATE
     Indication: DENTAL DISORDER PROPHYLAXIS
     Route: 048
     Dates: start: 20170504, end: 20170529
  10. ORAMORPH [Concomitant]
     Active Substance: MORPHINE SULFATE
     Indication: MUCOSAL INFLAMMATION
     Route: 048
     Dates: start: 20170503
  11. VENETOCLAX. [Suspect]
     Active Substance: VENETOCLAX
     Indication: ACUTE MYELOID LEUKAEMIA
     Route: 048
     Dates: start: 20170406, end: 20170406
  12. MOVICOL [Concomitant]
     Active Substance: POLYETHYLENE GLYCOL 3350\POTASSIUM CHLORIDE\SODIUM BICARBONATE\SODIUM CHLORIDE
     Indication: CONSTIPATION PROPHYLAXIS
     Dosage: BAG
     Route: 048
     Dates: start: 20170411, end: 20170508
  13. SODIUM BICARBONATE. [Concomitant]
     Active Substance: SODIUM BICARBONATE
     Route: 048
     Dates: start: 20170529
  14. ZELITREX [Concomitant]
     Active Substance: VALACYCLOVIR HYDROCHLORIDE
     Indication: ORAL HERPES
     Route: 048
     Dates: start: 20170505
  15. ZINNAT [Concomitant]
     Active Substance: CEFUROXIME AXETIL
     Route: 048
     Dates: start: 20170529
  16. OXYCONTIN [Concomitant]
     Active Substance: OXYCODONE HYDROCHLORIDE
     Indication: MUCOSAL INFLAMMATION
     Route: 048
     Dates: start: 20170503, end: 20170508
  17. BETADINE [Concomitant]
     Active Substance: POVIDONE-IODINE
     Indication: FOLLICULITIS
     Route: 061
     Dates: start: 201706
  18. ZINNAT [Concomitant]
     Active Substance: CEFUROXIME AXETIL
     Indication: PYREXIA
     Route: 048
     Dates: start: 20170423, end: 20170503
  19. MOVICOL [Concomitant]
     Active Substance: POLYETHYLENE GLYCOL 3350\POTASSIUM CHLORIDE\SODIUM BICARBONATE\SODIUM CHLORIDE
     Dosage: BAG
     Route: 048
     Dates: start: 20170508
  20. FUNGIZONE [Concomitant]
     Active Substance: AMPHOTERICIN B
     Indication: MUCOSAL INFLAMMATION
     Route: 048
     Dates: start: 20170503
  21. GLYCO THYMOLINE [Concomitant]
     Indication: DENTAL DISORDER PROPHYLAXIS
     Dosage: SPIT AND SWALLOW ROUTE
     Route: 050
     Dates: start: 20170504
  22. FRESUBIN [Concomitant]
     Active Substance: AMINO ACIDS\DEXTROSE\ELECTROLYTES NOS\SOYBEAN OIL\VITAMINS
     Indication: NUTRITIONAL SUPPLEMENTATION
     Route: 048
     Dates: start: 20170503
  23. PARACETAMOL [Concomitant]
     Active Substance: ACETAMINOPHEN
     Indication: BONE PAIN
     Route: 048
     Dates: start: 20170329
  24. VENETOCLAX. [Suspect]
     Active Substance: VENETOCLAX
     Route: 048
     Dates: start: 20170407, end: 20170407
  25. VENETOCLAX. [Suspect]
     Active Substance: VENETOCLAX
     Route: 048
     Dates: start: 20170408, end: 20170902
  26. OFLOCET [Concomitant]
     Active Substance: OFLOXACIN
     Indication: PYREXIA
     Route: 048
     Dates: start: 20170423, end: 20170503
  27. LORAZEPAM. [Concomitant]
     Active Substance: LORAZEPAM
     Indication: ANXIETY
     Route: 048
     Dates: start: 20170508

REACTIONS (1)
  - Multiple organ dysfunction syndrome [Recovered/Resolved]

NARRATIVE: CASE EVENT DATE: 20170902
